FAERS Safety Report 6682367-7 (Version None)
Quarter: 2010Q2

REPORT INFORMATION
  Report Type: 
  Country: None (occurrence: None)
  Receive Date: 20100415
  Receipt Date: 20100402
  Transmission Date: 20101027
  Serious: Yes (Other)
  Sender: FDA-Public Use
  Company Number: US-ALEXION-A201000148

PATIENT
  Sex: Male
  Weight: 70 kg

DRUGS (2)
  1. SOLIRIS [Suspect]
     Indication: MALIGNANT ATROPHIC PAPULOSIS
     Dosage: UNK
     Route: 042
     Dates: start: 20100109
  2. SOLIRIS [Suspect]
     Dosage: QOW
     Route: 042
     Dates: start: 20100205

REACTIONS (1)
  - LEUKOPENIA [None]
